FAERS Safety Report 10078690 (Version 1)
Quarter: 2014Q2

REPORT INFORMATION
  Report Type: Spontaneous
  Country: FR (occurrence: FR)
  Receive Date: 20140415
  Receipt Date: 20140415
  Transmission Date: 20141212
  Serious: Yes (Hospitalization, Other)
  Sender: FDA-Public Use
  Company Number: FR-ELI_LILLY_AND_COMPANY-FR201404003371

PATIENT
  Age: 83 Year
  Sex: Female

DRUGS (13)
  1. UMULINE [Suspect]
     Indication: INSULIN-REQUIRING TYPE 2 DIABETES MELLITUS
     Dosage: 46 IU, QD
     Route: 058
  2. UMULINE [Suspect]
     Dosage: 28 IU, EACH MORNING
     Route: 058
  3. MICARDIS [Concomitant]
  4. ALDACTAZINE [Concomitant]
  5. CACIT VITAMINE D3 [Concomitant]
  6. LEXOMIL [Concomitant]
  7. LAROXYL [Concomitant]
  8. DAFALGAN [Concomitant]
  9. DAFALGAN CODEINE [Concomitant]
  10. OFLOCET                            /00731801/ [Concomitant]
  11. SERETIDE [Concomitant]
  12. PREVISCAN                          /00261401/ [Concomitant]
  13. LASILIX                            /00032601/ [Concomitant]

REACTIONS (9)
  - Hypoglycaemic unconsciousness [Recovered/Resolved]
  - Fall [Recovered/Resolved with Sequelae]
  - Overdose [Unknown]
  - Haematoma [Recovering/Resolving]
  - Speech disorder [Unknown]
  - Hyperglycaemia [Unknown]
  - Pain in extremity [Unknown]
  - Induration [Unknown]
  - Oedema peripheral [Unknown]
